FAERS Safety Report 5195035-8 (Version None)
Quarter: 2006Q4

REPORT INFORMATION
  Report Type: 
  Country: None (occurrence: None)
  Receive Date: 20061229
  Receipt Date: 20061114
  Transmission Date: 20070319
  Serious: Yes (Other)
  Sender: FDA-Public Use
  Company Number: GB-ABBOTT-06P-167-0350635-00

PATIENT
  Sex: Female
  Weight: 76 kg

DRUGS (2)
  1. KLARICID [Suspect]
     Indication: UPPER RESPIRATORY TRACT INFECTION
     Route: 048
     Dates: start: 20061001, end: 20061112
  2. KLARICID [Suspect]

REACTIONS (2)
  - AGEUSIA [None]
  - ANOSMIA [None]
